FAERS Safety Report 18660732 (Version 2)
Quarter: 2020Q4

REPORT INFORMATION
  Report Type: Report from Study
  Country: GB (occurrence: GB)
  Receive Date: 20201224
  Receipt Date: 20201231
  Transmission Date: 20210114
  Serious: Yes (Hospitalization)
  Sender: FDA-Public Use
  Company Number: GB-SHIRE-GB201939099

PATIENT
  Age: 24 Year
  Sex: Female

DRUGS (5)
  1. C1 INHIBITOR (HUMAN) [Suspect]
     Active Substance: HUMAN C1-ESTERASE INHIBITOR
     Indication: HEREDITARY ANGIOEDEMA
     Dosage: 1000 INTERNATIONAL UNIT, AS REQ^D
     Route: 042
  2. FIRAZYR [Suspect]
     Active Substance: ICATIBANT ACETATE
     Indication: HEREDITARY ANGIOEDEMA
     Dosage: 30 MILLIGRAM, AS REQ^D (ACUTE)
     Route: 058
  3. C1 INHIBITOR (HUMAN) [Suspect]
     Active Substance: HUMAN C1-ESTERASE INHIBITOR
     Indication: HEREDITARY ANGIOEDEMA
     Dosage: 1000 INTERNATIONAL UNIT, AS REQ^D
     Route: 042
  4. FIRAZYR [Suspect]
     Active Substance: ICATIBANT ACETATE
     Indication: HEREDITARY ANGIOEDEMA
     Dosage: 30 MILLIGRAM, AS REQ^D (ACUTE)
     Route: 058
  5. C1 INHIBITOR (HUMAN) [Suspect]
     Active Substance: HUMAN C1-ESTERASE INHIBITOR
     Indication: HEREDITARY ANGIOEDEMA
     Dosage: 1000 INTERNATIONAL UNIT, AS REQ^D
     Route: 042

REACTIONS (11)
  - Hereditary angioedema [Unknown]
  - Stress [Unknown]
  - Wrong technique in product usage process [Unknown]
  - Exposure during pregnancy [Unknown]
  - Vein collapse [Unknown]
  - Condition aggravated [Unknown]
  - Pain [Unknown]
  - Poor venous access [Unknown]
  - Product supply issue [Unknown]
  - Incorrect product administration duration [Unknown]
  - Product availability issue [Unknown]
